FAERS Safety Report 5018416-1 (Version None)
Quarter: 2006Q2

REPORT INFORMATION
  Report Type: 
  Country: None (occurrence: None)
  Receive Date: 20060530
  Receipt Date: 20060519
  Transmission Date: 20061013
  Serious: Yes (Life-Threatening)
  Sender: FDA-Public Use
  Company Number: 225362

PATIENT
  Age: 42 Year
  Sex: 0

DRUGS (2)
  1. RITUXAN [Suspect]
     Indication: NON-HODGKIN'S LYMPHOMA
     Dates: start: 20060519
  2. PHENOBARBITAL [Concomitant]

REACTIONS (7)
  - CARDIOTOXICITY [None]
  - CHILLS [None]
  - CYANOSIS [None]
  - INFUSION RELATED REACTION [None]
  - PERICARDIAL EFFUSION [None]
  - PULMONARY TOXICITY [None]
  - SINUS TACHYCARDIA [None]
